FAERS Safety Report 7560416-1 (Version None)
Quarter: 2011Q2

REPORT INFORMATION
  Report Type: 
  Country: None (occurrence: None)
  Receive Date: 20110621
  Receipt Date: 20110616
  Transmission Date: 20111010
  Serious: Yes (Hospitalization)
  Sender: FDA-Public Use
  Company Number: JP-ABBOTT-11P-087-0721564-00

PATIENT
  Sex: Male
  Weight: 61.2 kg

DRUGS (8)
  1. HUMIRA [Suspect]
     Indication: CROHN'S DISEASE
     Route: 058
     Dates: start: 20110228, end: 20110313
  2. MESALAMINE [Concomitant]
     Indication: CROHN'S DISEASE
     Dosage: 3000MG DAILY
     Route: 048
  3. CLOSTRIDIUM BUTYRICUM [Concomitant]
     Indication: CROHN'S DISEASE
  4. HUMIRA [Suspect]
     Dates: start: 20110314, end: 20110327
  5. HUMIRA [Suspect]
     Dates: start: 20110524, end: 20110605
  6. TPN [Concomitant]
     Indication: CROHN'S DISEASE
     Route: 048
     Dates: start: 20110512
  7. HUMIRA [Suspect]
     Dates: start: 20110328, end: 20110424
  8. ALBUMIN TANNATE [Concomitant]
     Indication: PROPHYLAXIS AGAINST DIARRHOEA
     Route: 048
     Dates: end: 20110425

REACTIONS (2)
  - GASTROINTESTINAL INFLAMMATION [None]
  - ILEUS [None]
